FAERS Safety Report 21696252 (Version 2)
Quarter: 2023Q2

REPORT INFORMATION
  Report Type: Spontaneous
  Country: JP (occurrence: JP)
  Receive Date: 20221207
  Receipt Date: 20230602
  Transmission Date: 20230721
  Serious: Yes (Death, Other)
  Sender: FDA-Public Use
  Company Number: JP-JAZZ-2022-JP-037024

PATIENT
  Age: 43 Year
  Sex: Male
  Weight: 67.1 kg

DRUGS (2)
  1. DEFITELIO [Suspect]
     Active Substance: DEFIBROTIDE SODIUM
     Indication: Venoocclusive liver disease
     Dosage: 25 MILLIGRAM/KILOGRAM
     Route: 042
     Dates: start: 20220325, end: 20220514
  2. DEFITELIO [Suspect]
     Active Substance: DEFIBROTIDE SODIUM
     Dosage: 25 MILLIGRAM/KILOGRAM
     Route: 042
     Dates: start: 20220516, end: 20220521

REACTIONS (1)
  - Acute myeloid leukaemia [Fatal]
